FAERS Safety Report 18980135 (Version 3)
Quarter: 2021Q2

REPORT INFORMATION
  Report Type: Spontaneous
  Country: JP (occurrence: JP)
  Receive Date: 20210308
  Receipt Date: 20210428
  Transmission Date: 20210717
  Serious: Yes (Other)
  Sender: FDA-Public Use
  Company Number: NVSJ2020JP005576

PATIENT
  Age: 18 Year
  Sex: Male
  Weight: 59.7 kg

DRUGS (10)
  1. METHYLPREDNISOLONE. [Suspect]
     Active Substance: METHYLPREDNISOLONE
     Indication: FOCAL SEGMENTAL GLOMERULOSCLEROSIS
     Dosage: 1000 MG
     Route: 041
     Dates: start: 20190515, end: 20190523
  2. METHYLPREDNISOLONE. [Suspect]
     Active Substance: METHYLPREDNISOLONE
     Indication: NEPHROTIC SYNDROME
  3. PREDNISOLONE. [Suspect]
     Active Substance: PREDNISOLONE
     Indication: NEPHROTIC SYNDROME
     Dosage: 60 MG, QD
     Route: 048
     Dates: start: 20190515, end: 20190622
  4. PREDNISOLONE. [Suspect]
     Active Substance: PREDNISOLONE
     Dosage: 30 MG
     Route: 048
     Dates: start: 20190623, end: 20190626
  5. RITUXAN [Suspect]
     Active Substance: RITUXIMAB
     Indication: NEPHROTIC SYNDROME
  6. MIZORIBINE [Suspect]
     Active Substance: MIZORIBINE
     Indication: NEPHROTIC SYNDROME
     Dosage: 200 UNK
     Route: 048
     Dates: start: 20040602, end: 20190625
  7. RITUXAN [Suspect]
     Active Substance: RITUXIMAB
     Indication: FOCAL SEGMENTAL GLOMERULOSCLEROSIS
     Dosage: 500 MG
     Route: 041
     Dates: start: 20190425, end: 20190425
  8. NEORAL [Suspect]
     Active Substance: CYCLOSPORINE
     Indication: FOCAL SEGMENTAL GLOMERULOSCLEROSIS
     Dosage: 100 MG, BID
     Route: 048
     Dates: start: 20190427, end: 20190622
  9. NEORAL [Suspect]
     Active Substance: CYCLOSPORINE
     Indication: NEPHROTIC SYNDROME
     Dosage: 100 MG
     Route: 048
     Dates: start: 20190623, end: 20190627
  10. PREDNISOLONE. [Suspect]
     Active Substance: PREDNISOLONE
     Dosage: 20 MG
     Route: 048
     Dates: start: 20190627, end: 20190705

REACTIONS (10)
  - Thrombotic cerebral infarction [Recovered/Resolved]
  - Concomitant disease aggravated [Unknown]
  - Pyrexia [Unknown]
  - Seizure [Unknown]
  - Renal impairment [Recovering/Resolving]
  - Transaminases increased [Unknown]
  - Diabetes mellitus [Recovered/Resolved]
  - Melaena [Recovered/Resolved]
  - Cytomegalovirus infection [Unknown]
  - Posterior reversible encephalopathy syndrome [Recovered/Resolved]

NARRATIVE: CASE EVENT DATE: 201904
